FAERS Safety Report 7256051-5 (Version None)
Quarter: 2011Q1

REPORT INFORMATION
  Report Type: 
  Country: None (occurrence: None)
  Receive Date: 20110129
  Receipt Date: 20100511
  Transmission Date: 20110831
  Serious: No
  Sender: FDA-Public Use
  Company Number: US-ABBOTT-10P-163-0643652-00

PATIENT
  Age: 62 Year
  Sex: Female

DRUGS (3)
  1. BENADRYL [Concomitant]
     Indication: HYPERSENSITIVITY
  2. HUMIRA [Suspect]
     Indication: RHEUMATOID ARTHRITIS
     Dates: start: 20100322
  3. BENICAR [Concomitant]
     Indication: HYPERTENSION

REACTIONS (2)
  - FLATULENCE [None]
  - DYSPEPSIA [None]
